FAERS Safety Report 6503973-6 (Version None)
Quarter: 2009Q4

REPORT INFORMATION
  Report Type: 
  Country: None (occurrence: None)
  Receive Date: 20091216
  Receipt Date: 20091216
  Transmission Date: 20100525
  Serious: Yes (Disabling, Other)
  Sender: FDA-Public Use
  Company Number: None

PATIENT
  Age: 51 Year
  Sex: Female
  Weight: 56.6996 kg

DRUGS (2)
  1. MELOXICAM [Suspect]
     Indication: OSTEOARTHRITIS
     Dosage: 15 MG TAB 1 A DAY MOUTH
     Route: 048
     Dates: start: 20090810, end: 20090817
  2. MELOXICAM [Suspect]
     Indication: PAIN
     Dosage: 15 MG TAB 1 A DAY MOUTH
     Route: 048
     Dates: start: 20090810, end: 20090817

REACTIONS (2)
  - ECONOMIC PROBLEM [None]
  - HYPOAESTHESIA [None]
